FAERS Safety Report 6238237-1 (Version None)
Quarter: 2009Q2

REPORT INFORMATION
  Report Type: 
  Country: None (occurrence: None)
  Receive Date: 20090617
  Receipt Date: 20090617
  Transmission Date: 20091009
  Serious: Yes (Hospitalization)
  Sender: FDA-Public Use
  Company Number: None

PATIENT
  Age: 70 Year
  Sex: Female
  Weight: 72.27 kg

DRUGS (13)
  1. LISINOPRIL [Suspect]
     Indication: HYPERTENSION
  2. PREDNISONE [Concomitant]
  3. ATENOLOL [Concomitant]
  4. CALCIUM WITH VITAMIN D [Concomitant]
  5. DIOVAN [Concomitant]
  6. HYDROCHLOROTHIAZIDE [Concomitant]
  7. COMBIVENT [Concomitant]
  8. PREMARIN [Concomitant]
  9. ADVAIR DISKUS 100/50 [Concomitant]
  10. ASPIRIN [Concomitant]
  11. AMBIEN CR [Concomitant]
  12. LISINOPRIL [Concomitant]
  13. TYLENOL (CAPLET) [Concomitant]

REACTIONS (3)
  - ANGIOEDEMA [None]
  - DYSPHAGIA [None]
  - SWOLLEN TONGUE [None]
